FAERS Safety Report 5964033-6 (Version None)
Quarter: 2008Q4

REPORT INFORMATION
  Report Type: 
  Country: None (occurrence: None)
  Receive Date: 20081119
  Receipt Date: 20080816
  Transmission Date: 20090506
  Serious: No
  Sender: FDA-Public Use
  Company Number: WAES 0808USA03468

PATIENT
  Age: 70 Year
  Sex: Female

DRUGS (3)
  1. JANUVIA [Suspect]
  2. AMARYL [Concomitant]
  3. INSULIN [Concomitant]

REACTIONS (2)
  - SWELLING [None]
  - THERAPEUTIC RESPONSE UNEXPECTED [None]
